FAERS Safety Report 6902332-1 (Version None)
Quarter: 2010Q3

REPORT INFORMATION
  Report Type: 
  Country: None (occurrence: None)
  Receive Date: 20100803
  Receipt Date: 20080516
  Transmission Date: 20110219
  Serious: No
  Sender: FDA-Public Use
  Company Number: US-PFIZER INC-2008043034

PATIENT
  Sex: Female
  Weight: 63.6 kg

DRUGS (5)
  1. LYRICA [Suspect]
     Indication: ARTHRALGIA
     Route: 048
     Dates: start: 20080428
  2. BENAZEPRIL [Concomitant]
     Route: 048
     Dates: start: 20050101
  3. HYDROCHLOROTHIAZIDE [Concomitant]
     Route: 048
     Dates: start: 20050101
  4. ALENDRONATE SODIUM [Concomitant]
     Route: 048
     Dates: start: 20050101
  5. SIMVASTATIN [Concomitant]
     Route: 048
     Dates: start: 20050101

REACTIONS (3)
  - AGEUSIA [None]
  - DYSGEUSIA [None]
  - NAUSEA [None]
